FAERS Safety Report 7936506-8 (Version None)
Quarter: 2011Q4

REPORT INFORMATION
  Report Type: 
  Country: None (occurrence: None)
  Receive Date: 20111123
  Receipt Date: 20110830
  Transmission Date: 20120403
  Serious: No
  Sender: FDA-Public Use
  Company Number: US-BAYER-2011-086603

PATIENT

DRUGS (3)
  1. ALEVE (CAPLET) [Suspect]
     Indication: TOOTHACHE
     Dosage: UNK
     Dates: start: 20110801
  2. PERCOCET [Concomitant]
  3. ORA-JEL [Concomitant]

REACTIONS (1)
  - TOOTHACHE [None]
